FAERS Safety Report 6419345-9 (Version None)
Quarter: 2009Q4

REPORT INFORMATION
  Report Type: 
  Country: None (occurrence: None)
  Receive Date: 20091029
  Receipt Date: 20091022
  Transmission Date: 20100525
  Serious: Yes (Hospitalization)
  Sender: FDA-Public Use
  Company Number: FR-BAYER-200829876GPV

PATIENT
  Age: 73 Year
  Sex: Female

DRUGS (4)
  1. CIFLOX [Suspect]
     Indication: OSTEOARTHRITIS
     Dosage: TOTAL DAILY DOSE: 1000 MG  UNIT DOSE: 500 MG
     Route: 048
     Dates: start: 20080919, end: 20081003
  2. AUGMENTIN [Suspect]
     Indication: OSTEOARTHRITIS
     Dosage: TOTAL DAILY DOSE: 3 G  UNIT DOSE: 1 G
     Route: 048
     Dates: start: 20080818, end: 20080918
  3. DALACINE [Suspect]
     Indication: OSTEOARTHRITIS
     Dosage: TOTAL DAILY DOSE: 1800 MG  UNIT DOSE: 600 MG
     Route: 048
     Dates: start: 20080919, end: 20081003
  4. NEXIUM [Suspect]
     Indication: GASTROOESOPHAGEAL REFLUX DISEASE
     Dosage: UNIT DOSE: 40 MG
     Route: 048
     Dates: start: 20080818, end: 20081008

REACTIONS (3)
  - CHOLANGITIS [None]
  - CYTOLYTIC HEPATITIS [None]
  - JAUNDICE [None]
